FAERS Safety Report 10062375 (Version 1)
Quarter: 2014Q2

REPORT INFORMATION
  Report Type: Spontaneous
  Country: US (occurrence: US)
  Receive Date: 20140407
  Receipt Date: 20140407
  Transmission Date: 20141212
  Serious: No
  Sender: FDA-Public Use
  Company Number: US-PFIZER INC-2014094461

PATIENT
  Sex: Female

DRUGS (5)
  1. CHANTIX [Suspect]
     Indication: SMOKING CESSATION THERAPY
     Dosage: UNK
     Route: 048
  2. CHANTIX [Suspect]
     Dosage: UNK
     Route: 048
  3. CHANTIX [Suspect]
     Dosage: UNK
     Route: 048
  4. CHANTIX [Suspect]
     Dosage: UNK
     Route: 048
     Dates: end: 201403
  5. CHANTIX [Suspect]
     Dosage: UNK
     Route: 048
     Dates: start: 2014

REACTIONS (1)
  - Abnormal dreams [Unknown]
